FAERS Safety Report 9215830 (Version 2)
Quarter: 2013Q3

REPORT INFORMATION
  Report Type: Report from Study
  Country: CA (occurrence: CA)
  Receive Date: 20130408
  Receipt Date: 20130719
  Transmission Date: 20140515
  Serious: Yes (Hospitalization, Other)
  Sender: FDA-Public Use
  Company Number: CA-JNJFOC-20130401174

PATIENT
  Age: 28 Year
  Sex: Female
  Weight: 66.2 kg

DRUGS (5)
  1. REMICADE [Suspect]
     Indication: CROHN^S DISEASE
     Route: 042
     Dates: start: 20111210
  2. REMICADE [Suspect]
     Indication: CROHN^S DISEASE
     Dosage: RECEIVED AROUND 28-MAR-2013
     Route: 042
     Dates: start: 2013
  3. DICLECTIN [Suspect]
     Indication: PRODUCT USED FOR UNKNOWN INDICATION
     Route: 065
  4. ZOLOFT [Suspect]
     Indication: PRODUCT USED FOR UNKNOWN INDICATION
     Route: 065
  5. VITAMIN D [Concomitant]
     Route: 065

REACTIONS (3)
  - Caesarean section [Unknown]
  - Infected cyst [Recovered/Resolved]
  - Exposure during pregnancy [Recovered/Resolved]
